FAERS Safety Report 6360258-9 (Version None)
Quarter: 2009Q3

REPORT INFORMATION
  Report Type: 
  Country: None (occurrence: None)
  Receive Date: 20090917
  Receipt Date: 20090907
  Transmission Date: 20100115
  Serious: Yes (Other)
  Sender: FDA-Public Use
  Company Number: DE-GENENTECH-290316

PATIENT

DRUGS (1)
  1. BEVACIZUMAB [Suspect]
     Indication: NEOVASCULARISATION
     Dosage: 1.25 MG, UNK
     Route: 031

REACTIONS (1)
  - HYPERTENSION [None]
